FAERS Safety Report 11099167 (Version 3)
Quarter: 2015Q4

REPORT INFORMATION
  Report Type: Report from Study
  Country: JP (occurrence: JP)
  Receive Date: 20150508
  Receipt Date: 20151221
  Transmission Date: 20160304
  Serious: Yes (Other)
  Sender: FDA-Public Use
  Company Number: JP-SHIRE-JP201503814

PATIENT
  Age: 51 Year
  Sex: Female

DRUGS (9)
  1. HYDREA [Concomitant]
     Active Substance: HYDROXYUREA
     Dosage: UNK UNK, UNKNOWN
     Route: 048
     Dates: start: 20150327
  2. 422 (ANAGRELIDE) [Suspect]
     Active Substance: ANAGRELIDE
     Indication: ESSENTIAL THROMBOCYTHAEMIA
     Dosage: 2.0 MG/DAY, UNKNOWN
     Route: 048
     Dates: start: 20150328, end: 20150423
  3. 422 (ANAGRELIDE) [Suspect]
     Active Substance: ANAGRELIDE
     Dosage: 1.0 MG/DAY, UNKNOWN
     Route: 048
     Dates: start: 20150217, end: 20150327
  4. 422 (ANAGRELIDE) [Suspect]
     Active Substance: ANAGRELIDE
     Dosage: 0.5 MG/DAY, OTHER (3 TIMES/WEEK, MON, WED, FRI )
     Route: 048
     Dates: start: 20150619
  5. 422 (ANAGRELIDE) [Suspect]
     Active Substance: ANAGRELIDE
     Dosage: 0.5 MG/DAY, UNKNOWN
     Route: 048
     Dates: start: 20150522, end: 20150618
  6. HYDREA [Concomitant]
     Active Substance: HYDROXYUREA
     Indication: ESSENTIAL THROMBOCYTHAEMIA
     Dosage: UNK UNK, UNKNOWN
     Route: 048
     Dates: end: 20150226
  7. HYDREA [Concomitant]
     Active Substance: HYDROXYUREA
     Dosage: 1 DF, 1X/DAY:QD
     Route: 048
     Dates: start: 20150227, end: 20150326
  8. 422 (ANAGRELIDE) [Suspect]
     Active Substance: ANAGRELIDE
     Dosage: 1.0 MG/DAY, UNKNOWN
     Route: 048
     Dates: start: 20150424, end: 20150521
  9. 422 (ANAGRELIDE) [Suspect]
     Active Substance: ANAGRELIDE
     Dosage: .05 MG/DAY, UNKNOWN
     Route: 048
     Dates: start: 20150210, end: 20150216

REACTIONS (2)
  - Hyperthyroidism [Not Recovered/Not Resolved]
  - Tachycardia paroxysmal [Recovered/Resolved]

NARRATIVE: CASE EVENT DATE: 20150421
